FAERS Safety Report 9058377 (Version 1)
Quarter: 2013Q1

REPORT INFORMATION
  Report Type: Spontaneous
  Country: US (occurrence: None)
  Receive Date: 20130205
  Receipt Date: 20130205
  Transmission Date: 20140127
  Serious: Yes (Disabling, Other)
  Sender: FDA-Public Use
  Company Number: None

PATIENT
  Age: 64 Year
  Sex: Female
  Weight: 67.13 kg

DRUGS (2)
  1. PROPARACAINE [Suspect]
     Dates: start: 20090921
  2. TROPICAMIDE [Suspect]

REACTIONS (10)
  - Eye disorder [None]
  - Ocular hyperaemia [None]
  - Eyelid oedema [None]
  - Eye discharge [None]
  - Feeling abnormal [None]
  - Insomnia [None]
  - Hypoaesthesia eye [None]
  - Visual acuity reduced [None]
  - Ocular discomfort [None]
  - Eye pain [None]
